FAERS Safety Report 15614750 (Version 2)
Quarter: 2018Q4

REPORT INFORMATION
  Report Type: Spontaneous
  Country: JP (occurrence: JP)
  Receive Date: 20181113
  Receipt Date: 20181122
  Transmission Date: 20190205
  Serious: Yes (Death, Hospitalization, Other)
  Sender: FDA-Public Use
  Company Number: JP-BRISTOL-MYERS SQUIBB COMPANY-BMS-2018-106570

PATIENT
  Age: 72 Year
  Sex: Male

DRUGS (1)
  1. OPDIVO [Suspect]
     Active Substance: NIVOLUMAB
     Indication: OROPHARYNGEAL CANCER
     Dosage: UNK
     Route: 042
     Dates: start: 20170619, end: 201708

REACTIONS (6)
  - Dehydration [Recovering/Resolving]
  - Renal failure [Recovering/Resolving]
  - General physical health deterioration [Unknown]
  - Upper gastrointestinal haemorrhage [Fatal]
  - Diarrhoea [Unknown]
  - Shock [Unknown]

NARRATIVE: CASE EVENT DATE: 201709
